FAERS Safety Report 10472535 (Version 1)
Quarter: 2014Q3

REPORT INFORMATION
  Report Type: Spontaneous
  Country: US (occurrence: None)
  Receive Date: 20140923
  Receipt Date: 20140923
  Transmission Date: 20150326
  Serious: No
  Sender: FDA-Public Use
  Company Number: None

PATIENT
  Age: 46 Year
  Sex: Female

DRUGS (1)
  1. XELJANZ [Suspect]
     Active Substance: TOFACITINIB CITRATE
     Indication: RHEUMATOID ARTHRITIS
     Route: 048
     Dates: start: 20140208

REACTIONS (7)
  - Headache [None]
  - Asthenia [None]
  - Hypercholesterolaemia [None]
  - Nausea [None]
  - Chills [None]
  - Fatigue [None]
  - Hyperhidrosis [None]

NARRATIVE: CASE EVENT DATE: 20140208
